FAERS Safety Report 7056889-3 (Version None)
Quarter: 2010Q4

REPORT INFORMATION
  Report Type: 
  Country: None (occurrence: None)
  Receive Date: 20101022
  Receipt Date: 20101013
  Transmission Date: 20110411
  Serious: Yes (Other)
  Sender: FDA-Public Use
  Company Number: SE-JNJFOC-20101003983

PATIENT
  Age: 38 Year
  Sex: Male

DRUGS (9)
  1. RISPERDAL [Suspect]
     Indication: PRODUCT USED FOR UNKNOWN INDICATION
     Dosage: DOSE: 1MG X 2
     Route: 065
  2. RISPERDAL [Suspect]
     Dosage: 3MG X 2 PER DAY
     Route: 065
  3. RISPERDAL CONSTA [Suspect]
     Indication: PRODUCT USED FOR UNKNOWN INDICATION
     Route: 030
  4. NOZINAN [Concomitant]
     Dosage: DOSE: 25 MG 2+ 2+ 4
     Route: 065
  5. SEROQUEL [Concomitant]
     Dosage: 300 MG X 3
     Route: 065
  6. LERGIGAN COMP. [Concomitant]
     Dosage: DOSE: 50MG 1+1+1
     Route: 065
  7. IMOVANE [Concomitant]
     Dosage: 7.5 MG X2
     Route: 065
  8. PROPAVAN [Concomitant]
     Dosage: IN THE EVENING
     Route: 065
  9. THERALEN [Concomitant]
     Dosage: DOSE: 40MG/ML 2 ML IN THE EVENING
     Route: 065

REACTIONS (6)
  - ANXIETY [None]
  - BUNDLE BRANCH BLOCK LEFT [None]
  - CARDIAC DISORDER [None]
  - CONDUCTION DISORDER [None]
  - ELECTROCARDIOGRAM ABNORMAL [None]
  - SINUS TACHYCARDIA [None]
